FAERS Safety Report 12217698 (Version 2)
Quarter: 2016Q2

REPORT INFORMATION
  Report Type: Report from Study
  Country: DE (occurrence: DE)
  Receive Date: 20160329
  Receipt Date: 20160505
  Transmission Date: 20160815
  Serious: Yes (Death, Hospitalization, Other)
  Sender: FDA-Public Use
  Company Number: DE-ASTELLAS-2015US021514

PATIENT
  Age: 44 Year
  Sex: Male

DRUGS (2)
  1. ERLOTINIB [Suspect]
     Active Substance: ERLOTINIB
     Indication: PANCREATIC CARCINOMA
     Route: 048
     Dates: start: 20130715, end: 20130729
  2. GEMCITABINE [Concomitant]
     Active Substance: GEMCITABINE\GEMCITABINE HYDROCHLORIDE
     Indication: PANCREATIC CARCINOMA
     Route: 042
     Dates: start: 20130715, end: 20130729

REACTIONS (2)
  - General physical health deterioration [Fatal]
  - Pulmonary embolism [Unknown]

NARRATIVE: CASE EVENT DATE: 20130906
